FAERS Safety Report 21173717 (Version 1)
Quarter: 2022Q3

REPORT INFORMATION
  Report Type: Spontaneous
  Country: US (occurrence: US)
  Receive Date: 20220804
  Receipt Date: 20220804
  Transmission Date: 20221026
  Serious: No
  Sender: FDA-Public Use
  Company Number: US-PERRIGO-21US029112

PATIENT
  Age: 38 Year
  Sex: Female
  Weight: 68.027 kg

DRUGS (7)
  1. LORATADINE [Suspect]
     Active Substance: LORATADINE
     Indication: Swelling
     Dosage: 10 MG, SINGLE
     Route: 048
     Dates: start: 20211003, end: 20211003
  2. LORATADINE [Suspect]
     Active Substance: LORATADINE
     Indication: Erythema
     Dosage: 10 MG, SINGLE
     Route: 048
     Dates: start: 20211004, end: 20211004
  3. LORATADINE [Suspect]
     Active Substance: LORATADINE
     Indication: Skin reaction
     Dosage: 10 MG, QD PRN
     Route: 048
     Dates: start: 202106, end: 202106
  4. LORATADINE [Suspect]
     Active Substance: LORATADINE
     Indication: Seasonal allergy
  5. PROBIOTICS NOS [Concomitant]
     Active Substance: PROBIOTICS NOS
     Indication: Irritable bowel syndrome
     Dosage: UNK
     Route: 065
     Dates: start: 2020
  6. VITAMIN D NOS [Concomitant]
     Active Substance: VITAMIN D NOS
     Indication: Vitamin D decreased
     Dosage: UNK
     Route: 065
     Dates: start: 2020
  7. FIBERMED [Concomitant]
     Indication: Irritable bowel syndrome
     Dosage: UNK
     Route: 065
     Dates: start: 2020

REACTIONS (3)
  - Off label use [Recovered/Resolved]
  - Inappropriate schedule of product administration [Recovered/Resolved]
  - Wrong product administered [Recovered/Resolved]

NARRATIVE: CASE EVENT DATE: 20211003
